FAERS Safety Report 10650331 (Version 2)
Quarter: 2014Q4

REPORT INFORMATION
  Report Type: Report from Study
  Country: US (occurrence: US)
  Receive Date: 20141213
  Receipt Date: 20141217
  Transmission Date: 20150529
  Serious: Yes (Death, Hospitalization)
  Sender: FDA-Public Use
  Company Number: US-ABBVIE-14K-163-1319656-00

PATIENT
  Age: 67 Year
  Sex: Female

DRUGS (4)
  1. GAMMAGARD [Concomitant]
     Active Substance: HUMAN IMMUNOGLOBULIN G
     Indication: PEMPHIGUS
  2. HUMIRA [Suspect]
     Active Substance: ADALIMUMAB
     Indication: PEMPHIGUS
     Route: 058
     Dates: start: 20110714, end: 201306
  3. METOPROLOL [Concomitant]
     Active Substance: METOPROLOL
     Indication: HYPERTENSION
  4. LASIX [Concomitant]
     Active Substance: FUROSEMIDE
     Indication: FLUID RETENTION

REACTIONS (4)
  - Renal failure [Recovered/Resolved]
  - Thrombosis [Fatal]
  - Depressed level of consciousness [Not Recovered/Not Resolved]
  - Abdominal pain [Recovered/Resolved]

NARRATIVE: CASE EVENT DATE: 201404
